FAERS Safety Report 6476091-3 (Version None)
Quarter: 2009Q4

REPORT INFORMATION
  Report Type: 
  Country: None (occurrence: None)
  Receive Date: 20091204
  Receipt Date: 20090112
  Transmission Date: 20100525
  Serious: No
  Sender: FDA-Public Use
  Company Number: US-AMGEN-KDL328125

PATIENT
  Sex: Male

DRUGS (1)
  1. ENBREL [Suspect]
     Indication: PSORIATIC ARTHROPATHY
     Route: 058
     Dates: start: 20061201

REACTIONS (5)
  - EAR INFECTION [None]
  - INJECTION SITE PAIN [None]
  - NECK PAIN [None]
  - PHARYNGITIS STREPTOCOCCAL [None]
  - SINUSITIS [None]
